FAERS Safety Report 21093655 (Version 6)
Quarter: 2022Q4

REPORT INFORMATION
  Report Type: Report from Study
  Country: CN (occurrence: None)
  Receive Date: 20220718
  Receipt Date: 20221102
  Transmission Date: 20230112
  Serious: Yes (Hospitalization)
  Sender: FDA-Public Use
  Company Number: CN-ROCHE-3139932

PATIENT
  Age: 79 Year
  Sex: Female
  Weight: 59.8 kg

DRUGS (64)
  1. POLATUZUMAB VEDOTIN [Suspect]
     Active Substance: POLATUZUMAB VEDOTIN
     Indication: Diffuse large B-cell lymphoma refractory
     Dosage: DOSE OF LAST POLATUZUMAB VEDOTIN ADMINISTERED PRIOR TO AE ONSET 113 MG?MOST RECENT DOSE OF POLATUZUM
     Route: 042
     Dates: start: 20220629
  2. RITUXIMAB [Suspect]
     Active Substance: RITUXIMAB
     Indication: Diffuse large B-cell lymphoma refractory
     Dosage: DOSE OF LAST RITUXIMAB ADMINISTERED PRIOR TO AE ONSET 623 MG?MOST RECENT DOSE OF RITUXIMAB 623 MG PR
     Route: 041
     Dates: start: 20220629
  3. GEMCITABINE [Suspect]
     Active Substance: GEMCITABINE
     Indication: Diffuse large B-cell lymphoma refractory
     Dosage: DOSE OF LAST GEMCITABINE ADMINISTERED PRIOR TO SAE ONSET 1660 MG?MOST RECENT DOSE OF GEMCITABINE 124
     Route: 042
     Dates: start: 20220630
  4. OXALIPLATIN [Suspect]
     Active Substance: OXALIPLATIN
     Indication: Diffuse large B-cell lymphoma refractory
     Dosage: DOSE OF LAST OXALIPLATIN ADMINISTERED PRIOR TO AE ONSET 166 MG?MOST RECENT DOSE OF OXALIPLATIN 166 M
     Route: 042
     Dates: start: 20220630
  5. PERINDOPRIL ERBUMINE [Concomitant]
     Active Substance: PERINDOPRIL ERBUMINE
     Route: 048
  6. DAPAGLIFLOZIN [Concomitant]
     Active Substance: DAPAGLIFLOZIN
     Route: 048
  7. COMPOUND PARACETAMOL BROMIDE (UNK INGREDIENTS) [Concomitant]
     Route: 048
     Dates: start: 20220629
  8. DIPHENHYDRAMINE HYDROCHLORIDE [Concomitant]
     Active Substance: DIPHENHYDRAMINE HYDROCHLORIDE
     Route: 030
     Dates: start: 20220630
  9. DIPHENHYDRAMINE HYDROCHLORIDE [Concomitant]
     Active Substance: DIPHENHYDRAMINE HYDROCHLORIDE
     Route: 030
     Dates: start: 20220711, end: 20220711
  10. DIPHENHYDRAMINE HYDROCHLORIDE [Concomitant]
     Active Substance: DIPHENHYDRAMINE HYDROCHLORIDE
     Route: 030
     Dates: start: 20220802, end: 20220803
  11. DIPHENHYDRAMINE HYDROCHLORIDE [Concomitant]
     Active Substance: DIPHENHYDRAMINE HYDROCHLORIDE
     Route: 030
     Dates: start: 20220901, end: 20220902
  12. DIPHENHYDRAMINE HYDROCHLORIDE [Concomitant]
     Active Substance: DIPHENHYDRAMINE HYDROCHLORIDE
     Route: 042
     Dates: start: 20220901, end: 20220901
  13. DEXAMETHASONE SODIUM PHOSPHATE [Concomitant]
     Active Substance: DEXAMETHASONE SODIUM PHOSPHATE
     Route: 042
     Dates: start: 20220629, end: 20220629
  14. DEXAMETHASONE SODIUM PHOSPHATE [Concomitant]
     Active Substance: DEXAMETHASONE SODIUM PHOSPHATE
     Route: 042
     Dates: start: 20220630, end: 20220630
  15. DEXAMETHASONE SODIUM PHOSPHATE [Concomitant]
     Active Substance: DEXAMETHASONE SODIUM PHOSPHATE
     Route: 042
     Dates: start: 20220802, end: 20220802
  16. DEXAMETHASONE SODIUM PHOSPHATE [Concomitant]
     Active Substance: DEXAMETHASONE SODIUM PHOSPHATE
     Route: 042
     Dates: start: 20220803, end: 20220803
  17. DEXAMETHASONE SODIUM PHOSPHATE [Concomitant]
     Active Substance: DEXAMETHASONE SODIUM PHOSPHATE
     Route: 042
     Dates: start: 20220902, end: 20220902
  18. ILAPRAZOLE [Concomitant]
     Active Substance: ILAPRAZOLE
     Route: 042
     Dates: start: 20220629
  19. ILAPRAZOLE [Concomitant]
     Active Substance: ILAPRAZOLE
     Route: 042
     Dates: start: 20220802, end: 20220802
  20. ILAPRAZOLE [Concomitant]
     Active Substance: ILAPRAZOLE
     Route: 042
     Dates: start: 20220901, end: 20220901
  21. FOSAPREPITANT DIMEGLUMINE [Concomitant]
     Active Substance: FOSAPREPITANT DIMEGLUMINE
     Route: 042
     Dates: start: 20220630, end: 20220630
  22. FOSAPREPITANT DIMEGLUMINE [Concomitant]
     Active Substance: FOSAPREPITANT DIMEGLUMINE
     Route: 042
     Dates: start: 20220803, end: 20220803
  23. FOSAPREPITANT DIMEGLUMINE [Concomitant]
     Active Substance: FOSAPREPITANT DIMEGLUMINE
     Route: 042
     Dates: start: 20220902, end: 20220902
  24. DOLASETRON MESYLATE [Concomitant]
     Active Substance: DOLASETRON MESYLATE
     Route: 042
     Dates: start: 20220630, end: 20220630
  25. DOLASETRON MESYLATE [Concomitant]
     Active Substance: DOLASETRON MESYLATE
     Route: 042
     Dates: start: 20220803, end: 20220803
  26. DOLASETRON MESYLATE [Concomitant]
     Active Substance: DOLASETRON MESYLATE
     Route: 042
     Dates: start: 20220902, end: 20220902
  27. RABEPRAZOLE [Concomitant]
     Active Substance: RABEPRAZOLE
     Route: 042
     Dates: start: 20220630, end: 20220630
  28. RABEPRAZOLE [Concomitant]
     Active Substance: RABEPRAZOLE
     Route: 042
     Dates: start: 20220803, end: 20220803
  29. RABEPRAZOLE [Concomitant]
     Active Substance: RABEPRAZOLE
     Route: 042
     Dates: start: 20220902, end: 20220902
  30. INSULIN NOS [Concomitant]
     Active Substance: INSULIN NOS
     Indication: Diabetes mellitus
     Dosage: 6 UNITS
     Route: 042
     Dates: start: 20220630, end: 20220630
  31. INSULIN NOS [Concomitant]
     Active Substance: INSULIN NOS
     Route: 042
     Dates: start: 20220709, end: 20220709
  32. INSULIN NOS [Concomitant]
     Active Substance: INSULIN NOS
     Dosage: 10 UNIT
     Route: 042
     Dates: start: 20220710, end: 20220710
  33. INSULIN NOS [Concomitant]
     Active Substance: INSULIN NOS
     Dosage: 6 UNIT
     Route: 042
     Dates: start: 20220803, end: 20220803
  34. INSULIN NOS [Concomitant]
     Active Substance: INSULIN NOS
     Dosage: 6 UNIT
     Route: 042
     Dates: start: 20220902, end: 20220902
  35. DEXTROSE [Concomitant]
     Active Substance: DEXTROSE
     Route: 042
     Dates: start: 20220709, end: 20220710
  36. DEXTROSE [Concomitant]
     Active Substance: DEXTROSE
     Route: 042
     Dates: start: 20220712, end: 20220712
  37. ASPIRIN [Concomitant]
     Active Substance: ASPIRIN
     Route: 048
     Dates: start: 20220709, end: 20220721
  38. CALCIUM CARBONATE\CHOLECALCIFEROL [Concomitant]
     Active Substance: CALCIUM CARBONATE\CHOLECALCIFEROL
     Route: 048
     Dates: start: 20220709, end: 20220709
  39. METOCLOPRAMIDE HYDROCHLORIDE [Concomitant]
     Active Substance: METOCLOPRAMIDE HYDROCHLORIDE
     Indication: Nausea
     Route: 030
     Dates: start: 20220709, end: 20220709
  40. POTASSIUM CHLORIDE [Concomitant]
     Active Substance: POTASSIUM CHLORIDE
     Indication: Electrolyte imbalance
     Route: 042
     Dates: start: 20220709, end: 20220709
  41. POTASSIUM CHLORIDE [Concomitant]
     Active Substance: POTASSIUM CHLORIDE
     Route: 042
     Dates: start: 20220710, end: 20220710
  42. POTASSIUM CHLORIDE [Concomitant]
     Active Substance: POTASSIUM CHLORIDE
     Route: 048
     Dates: start: 20220710, end: 20220710
  43. POTASSIUM CHLORIDE [Concomitant]
     Active Substance: POTASSIUM CHLORIDE
     Route: 048
     Dates: start: 20220711, end: 20220714
  44. POTASSIUM CHLORIDE [Concomitant]
     Active Substance: POTASSIUM CHLORIDE
     Route: 042
     Dates: start: 20220711, end: 20220711
  45. POTASSIUM CHLORIDE [Concomitant]
     Active Substance: POTASSIUM CHLORIDE
     Route: 042
     Dates: start: 20220712, end: 20220714
  46. LEVOFLOXACIN HYDROCHLORIDE [Concomitant]
     Active Substance: LEVOFLOXACIN HYDROCHLORIDE
     Route: 042
     Dates: start: 20220709, end: 20220710
  47. METOCLOPRAMIDE [Concomitant]
     Active Substance: METOCLOPRAMIDE
     Indication: Nausea
     Route: 048
     Dates: start: 20220709, end: 20220710
  48. LEVOTHYROXINE SODIUM [Concomitant]
     Active Substance: LEVOTHYROXINE SODIUM
     Indication: Hypothyroidism
     Route: 048
     Dates: start: 20220709, end: 20220709
  49. MAGNESIUM ASPARTATE\POTASSIUM ASPARTATE [Concomitant]
     Active Substance: MAGNESIUM ASPARTATE\POTASSIUM ASPARTATE
     Route: 048
     Dates: start: 20220709, end: 20220709
  50. MAGNESIUM ASPARTATE\POTASSIUM ASPARTATE [Concomitant]
     Active Substance: MAGNESIUM ASPARTATE\POTASSIUM ASPARTATE
     Indication: Electrolyte imbalance
     Route: 042
     Dates: start: 20220710, end: 20220710
  51. MAGNESIUM ASPARTATE\POTASSIUM ASPARTATE [Concomitant]
     Active Substance: MAGNESIUM ASPARTATE\POTASSIUM ASPARTATE
     Route: 042
     Dates: start: 20220711, end: 20220714
  52. GRANISETRON HYDROCHLORIDE [Concomitant]
     Active Substance: GRANISETRON HYDROCHLORIDE
     Indication: Vomiting
     Route: 042
     Dates: start: 20220711, end: 20220712
  53. CALCIUM GLUCONATE [Concomitant]
     Active Substance: CALCIUM GLUCONATE
     Indication: Electrolyte imbalance
     Route: 042
     Dates: start: 20220711, end: 20220721
  54. SODIUM GLYCEROPHOSPHATE [Concomitant]
     Active Substance: SODIUM GLYCEROPHOSPHATE
     Route: 048
     Dates: start: 20220711, end: 20220714
  55. MONTMORILLONITE [Concomitant]
     Active Substance: MONTMORILLONITE
     Indication: Diarrhoea
     Route: 048
     Dates: start: 20220711, end: 20220721
  56. CEFOPERAZONE SODIUM\SULBACTAM SODIUM [Concomitant]
     Active Substance: CEFOPERAZONE SODIUM\SULBACTAM SODIUM
     Route: 042
     Dates: start: 20220711, end: 20220714
  57. MEGESTROL ACETATE [Concomitant]
     Active Substance: MEGESTROL ACETATE
     Indication: Decreased appetite
     Route: 048
     Dates: start: 20220711, end: 20220714
  58. MOXIFLOXACIN HYDROCHLORIDE [Concomitant]
     Active Substance: MOXIFLOXACIN HYDROCHLORIDE
     Route: 042
     Dates: start: 20220714, end: 20220720
  59. FRUCTOSE DIPHOSPHATE SODIUM [Concomitant]
     Indication: Electrolyte imbalance
     Route: 042
     Dates: start: 20220712, end: 20220712
  60. FRUCTOSE DIPHOSPHATE SODIUM [Concomitant]
     Route: 042
     Dates: start: 20220713, end: 20220714
  61. COMPOUND PARACETAMOL [Concomitant]
     Route: 048
     Dates: start: 20220802, end: 20220802
  62. COMPOUND PARACETAMOL [Concomitant]
     Route: 048
     Dates: start: 20220901, end: 20220901
  63. VALACYCLOVIR HYDROCHLORIDE [Concomitant]
     Active Substance: VALACYCLOVIR HYDROCHLORIDE
     Route: 048
     Dates: start: 20220808, end: 20220814
  64. SULFAMETHOXAZOLE [Concomitant]
     Active Substance: SULFAMETHOXAZOLE
     Route: 048
     Dates: start: 20220808, end: 20220814

REACTIONS (1)
  - Platelet count decreased [Recovering/Resolving]

NARRATIVE: CASE EVENT DATE: 20220703
